FAERS Safety Report 20866678 (Version 1)
Quarter: 2022Q2

REPORT INFORMATION
  Report Type: Report from Study
  Country: FR (occurrence: FR)
  Receive Date: 20220524
  Receipt Date: 20220524
  Transmission Date: 20220721
  Serious: Yes (Death, Hospitalization)
  Sender: FDA-Public Use
  Company Number: FR-SA-SAC20220523000626

PATIENT
  Sex: Female

DRUGS (14)
  1. ISATUXIMAB [Suspect]
     Active Substance: ISATUXIMAB
     Indication: Plasma cell myeloma
     Dosage: 800 MG
     Dates: start: 20211108
  2. ISATUXIMAB [Suspect]
     Active Substance: ISATUXIMAB
     Dosage: 800 MG
     Dates: start: 20220419, end: 20220503
  3. LENALIDOMIDE [Suspect]
     Active Substance: LENALIDOMIDE
     Indication: Plasma cell myeloma
     Dosage: 25 MG
     Dates: start: 20211108
  4. LENALIDOMIDE [Suspect]
     Active Substance: LENALIDOMIDE
     Dosage: 25 MG
     Dates: start: 20220426, end: 20220503
  5. DEXAMETHASONE [Suspect]
     Active Substance: DEXAMETHASONE
     Indication: Plasma cell myeloma
     Dosage: 20 MG
     Dates: start: 20211108
  6. DEXAMETHASONE [Suspect]
     Active Substance: DEXAMETHASONE
     Dosage: 20 MG
     Dates: start: 20220426
  7. SPIRONOLACTONE [Concomitant]
     Active Substance: SPIRONOLACTONE
     Indication: Hypertension
     Dosage: 50 MG
  8. LEVOTHYROXINE [Concomitant]
     Active Substance: LEVOTHYROXINE
     Indication: Hypothyroidism
     Dosage: 100 MG
  9. BISOPROLOL FUMARATE\HYDROCHLOROTHIAZIDE [Concomitant]
     Active Substance: BISOPROLOL FUMARATE\HYDROCHLOROTHIAZIDE
     Indication: Arrhythmia
     Dosage: 2.5 MG
  10. DIGOXIN [Concomitant]
     Active Substance: DIGOXIN
     Dosage: 0.125 MG
  11. FUROSEMIDE [Concomitant]
     Active Substance: FUROSEMIDE
     Indication: Hypertension
     Dosage: 500 MG
  12. XARELTO [Concomitant]
     Active Substance: RIVAROXABAN
     Dosage: 10 MG
  13. INSULIN LENTE S [Concomitant]
     Indication: Diabetes mellitus
     Dosage: 13 IU
  14. NOVORAPID [Concomitant]
     Active Substance: INSULIN ASPART
     Indication: Diabetes mellitus
     Dosage: 9 IU

REACTIONS (1)
  - Sepsis [Fatal]

NARRATIVE: CASE EVENT DATE: 20220502
